FAERS Safety Report 16669700 (Version 1)
Quarter: 2019Q3

REPORT INFORMATION
  Report Type: Spontaneous
  Country: US (occurrence: US)
  Receive Date: 20190805
  Receipt Date: 20190805
  Transmission Date: 20191004
  Serious: No
  Sender: FDA-Public Use
  Company Number: US-BAUSCH-BL-2019-021764

PATIENT
  Sex: Female

DRUGS (1)
  1. RELISTOR [Suspect]
     Active Substance: METHYLNALTREXONE BROMIDE
     Indication: CONSTIPATION
     Route: 065

REACTIONS (3)
  - Inability to afford medication [Unknown]
  - Insurance issue [Unknown]
  - Therapy cessation [Unknown]
